FAERS Safety Report 10072845 (Version 1)
Quarter: 2014Q2

REPORT INFORMATION
  Report Type: Spontaneous
  Country: US (occurrence: US)
  Receive Date: 20140411
  Receipt Date: 20140411
  Transmission Date: 20141212
  Serious: Yes (Hospitalization)
  Sender: FDA-Public Use
  Company Number: US-BAYER-2014-054237

PATIENT
  Age: 89 Year
  Sex: Male

DRUGS (3)
  1. XOFIGO [Suspect]
     Indication: HORMONE-REFRACTORY PROSTATE CANCER
     Dosage: UNK
     Dates: start: 20131223
  2. VELCADE [Concomitant]
     Dosage: UNK
     Dates: end: 201311
  3. DECADRON [Concomitant]
     Dosage: UNK
     Dates: end: 201311

REACTIONS (2)
  - Pyrexia [None]
  - Thrombocytopenia [None]
